FAERS Safety Report 7389080-1 (Version None)
Quarter: 2011Q1

REPORT INFORMATION
  Report Type: 
  Country: None (occurrence: None)
  Receive Date: 20110324
  Receipt Date: 20110218
  Transmission Date: 20110831
  Serious: Yes (Other)
  Sender: FDA-Public Use
  Company Number: PI-05413

PATIENT
  Age: 3 Month
  Sex: Female

DRUGS (2)
  1. CHLORAPREP WITH TINT [Suspect]
     Indication: PREOPERATIVE CARE
     Dosage: 10.5ML, ONCE, TOPICAL
     Route: 061
     Dates: start: 20110204
  2. CHLORAPREP WITH TINT [Suspect]
     Indication: PREOPERATIVE CARE
     Dosage: 10.5ML,ONCE,TOPICAL
     Route: 061
     Dates: start: 20110204

REACTIONS (5)
  - APPLICATION SITE DISCHARGE [None]
  - POST PROCEDURAL COMPLICATION [None]
  - CHEMICAL INJURY [None]
  - APPLICATION SITE VESICLES [None]
  - APPLICATION SITE ERYTHEMA [None]
